FAERS Safety Report 23786284 (Version 2)
Quarter: 2024Q2

REPORT INFORMATION
  Report Type: Spontaneous
  Country: MK (occurrence: None)
  Receive Date: 20240426
  Receipt Date: 20240517
  Transmission Date: 20240715
  Serious: Yes (Life-Threatening, Hospitalization)
  Sender: FDA-Public Use
  Company Number: 2024A097389

PATIENT
  Age: 47 Year
  Sex: Female

DRUGS (4)
  1. TAGRISSO [Suspect]
     Active Substance: OSIMERTINIB
     Indication: Adenocarcinoma
     Route: 048
     Dates: start: 20240327, end: 20240405
  2. DEXAMETHASONE [Concomitant]
     Active Substance: DEXAMETHASONE
     Dosage: 500.0UG UNKNOWN
     Dates: start: 20240327
  3. PHENOBARBITAL [Concomitant]
     Active Substance: PHENOBARBITAL
     Dosage: 50.0MG UNKNOWN
     Dates: start: 20240327
  4. FAMOTIDINE [Concomitant]
     Active Substance: FAMOTIDINE
     Dosage: 40.0MG UNKNOWN
     Dates: start: 20240327

REACTIONS (6)
  - Skin exfoliation [Recovering/Resolving]
  - Oesophagitis [Recovering/Resolving]
  - Tracheal inflammation [Recovering/Resolving]
  - Toxic epidermal necrolysis [Recovering/Resolving]
  - Stomatitis [Recovering/Resolving]
  - Conjunctivitis [Recovering/Resolving]

NARRATIVE: CASE EVENT DATE: 20240405
